FAERS Safety Report 10735919 (Version 1)
Quarter: 2015Q1

REPORT INFORMATION
  Report Type: Spontaneous
  Country: DE (occurrence: None)
  Receive Date: 20150121
  Receipt Date: 20150121
  Transmission Date: 20150721
  Serious: Yes (Hospitalization)
  Sender: FDA-Public Use
  Company Number: 2709816

PATIENT
  Age: 16 Year
  Sex: Male

DRUGS (10)
  1. TEICOPLANIN [Concomitant]
     Active Substance: TEICOPLANIN
  2. LEVETIRACETAM. [Suspect]
     Active Substance: LEVETIRACETAM
     Indication: SEIZURE
  3. ATG RABBIT [Concomitant]
     Active Substance: LAPINE T-LYMPHOCYTE IMMUNE GLOBULIN
  4. CEFTAZIDIME. [Concomitant]
     Active Substance: CEFTAZIDIME
  5. MEROPENEM. [Concomitant]
     Active Substance: MEROPENEM
  6. PHENYTOIN. [Concomitant]
     Active Substance: PHENYTOIN
  7. TOBRAMYCIN. [Concomitant]
     Active Substance: TOBRAMYCIN
  8. G-CSF [Concomitant]
     Active Substance: GRANULOCYTE COLONY-STIMULATING FACTOR NOS
  9. VALPROIC ACID. [Concomitant]
     Active Substance: VALPROIC ACID
  10. ETOPOSIDE. [Concomitant]
     Active Substance: ETOPOSIDE

REACTIONS (1)
  - Transplant failure [None]
